FAERS Safety Report 21223208 (Version 6)
Quarter: 2022Q4

REPORT INFORMATION
  Report Type: Spontaneous
  Country: DE (occurrence: DE)
  Receive Date: 20220817
  Receipt Date: 20221012
  Transmission Date: 20230113
  Serious: Yes (Other)
  Sender: FDA-Public Use
  Company Number: DE-TAKEDA-2022TUS056101

PATIENT
  Age: 35 Year
  Sex: Female

DRUGS (6)
  1. ENTYVIO [Suspect]
     Active Substance: VEDOLIZUMAB
     Indication: Colitis ulcerative
     Dosage: UNK
     Route: 065
     Dates: start: 202111
  2. ENTYVIO [Suspect]
     Active Substance: VEDOLIZUMAB
     Indication: Colitis ulcerative
     Dosage: UNK
     Route: 058
  3. MESALAMINE [Suspect]
     Active Substance: MESALAMINE
     Indication: Colitis ulcerative
     Dosage: UNK
     Route: 065
  4. BUDESONIDE [Suspect]
     Active Substance: BUDESONIDE
     Indication: Colitis ulcerative
     Dosage: UNK
     Route: 065
  5. CORTISONE [Suspect]
     Active Substance: CORTISONE
     Indication: Product used for unknown indication
     Dosage: UNK
     Route: 065
  6. CORTISONE [Suspect]
     Active Substance: CORTISONE
     Indication: Colitis ulcerative

REACTIONS (4)
  - Colitis ulcerative [Unknown]
  - COVID-19 [Unknown]
  - Muscle spasms [Unknown]
  - Drug ineffective [Unknown]
